APPROVED DRUG PRODUCT: VECURONIUM BROMIDE
Active Ingredient: VECURONIUM BROMIDE
Strength: 10MG/VIAL
Dosage Form/Route: INJECTABLE;INJECTION
Application: A203725 | Product #001 | TE Code: AP
Applicant: HIKMA FARMACEUTICA PORTUGAL SA
Approved: Jul 30, 2019 | RLD: No | RS: No | Type: RX